FAERS Safety Report 8987560 (Version 1)
Quarter: 2012Q4

REPORT INFORMATION
  Report Type: 
  Country: GB (occurrence: GB)
  Receive Date: 20121227
  Receipt Date: 20121227
  Transmission Date: 20130627
  Serious: Yes (Other)
  Sender: FDA-Public Use
  Company Number: GB-BAYER-2012-133263

PATIENT
  Age: 38 Year
  Sex: Female

DRUGS (1)
  1. BETAFERON [Suspect]
     Indication: MULTIPLE SCLEROSIS
     Dosage: 250 ?g, QOD
     Route: 058
     Dates: end: 20121217

REACTIONS (2)
  - Multiple sclerosis relapse [None]
  - Drug ineffective [None]
